FAERS Safety Report 10073803 (Version 1)
Quarter: 2014Q2

REPORT INFORMATION
  Report Type: Spontaneous
  Country: US (occurrence: US)
  Receive Date: 20140411
  Receipt Date: 20140411
  Transmission Date: 20141212
  Serious: Yes (Hospitalization)
  Sender: FDA-Public Use
  Company Number: PHEH2014US007097

PATIENT
  Sex: Female

DRUGS (2)
  1. VALSARTAN [Suspect]
     Dosage: 160 MG, UNK
  2. DIOVAN HCT [Suspect]
     Dosage: UNK UKN, UNK

REACTIONS (2)
  - Malaise [Recovered/Resolved]
  - Headache [Recovered/Resolved]
